FAERS Safety Report 4645028-1 (Version None)
Quarter: 2005Q2

REPORT INFORMATION
  Report Type: 
  Country: None (occurrence: None)
  Receive Date: 20050426
  Receipt Date: 20050217
  Transmission Date: 20051028
  Serious: Yes (Other)
  Sender: FDA-Public Use
  Company Number: US-ROCHE-396137

PATIENT
  Sex: Female
  Weight: 0.3 kg

DRUGS (10)
  1. FUZEON [Suspect]
  2. NORVIR [Suspect]
     Dates: start: 20031212, end: 20040708
  3. NORVIR [Suspect]
     Dates: start: 20040809
  4. TMC-114 [Suspect]
     Dates: start: 20031212, end: 20040728
  5. VIREAD [Suspect]
  6. VIDEX [Suspect]
  7. LOPINAVIR [Suspect]
  8. REYATAZ [Suspect]
  9. METAMIZOL [Concomitant]
     Dates: end: 20040717
  10. DIHYDROCODEINE BITARTRATE INJ [Concomitant]
     Indication: DIARRHOEA

REACTIONS (8)
  - ABORTION INDUCED [None]
  - DRUG EXPOSURE DURING PREGNANCY [None]
  - FOETAL GROWTH RETARDATION [None]
  - FOETAL HEART RATE ABNORMAL [None]
  - FOETAL MOVEMENTS DECREASED [None]
  - INTRA-UTERINE DEATH [None]
  - PLACENTA PRAEVIA [None]
  - PREGNANCY [None]
